FAERS Safety Report 8532300-8 (Version None)
Quarter: 2012Q3

REPORT INFORMATION
  Report Type: 
  Country: None (occurrence: None)
  Receive Date: 20120724
  Receipt Date: 20120709
  Transmission Date: 20120928
  Serious: Yes (Life-Threatening, Hospitalization)
  Sender: FDA-Public Use
  Company Number: US-MSD-1207USA003620

PATIENT

DRUGS (6)
  1. VORINOSTAT [Suspect]
     Dosage: DAYS 1-5, WEEKLY
     Dates: start: 20120604, end: 20120608
  2. TEMOZOLOMIDE [Suspect]
     Indication: GLIOBLASTOMA MULTIFORME
     Dosage: 75 MG/M2, QD
     Route: 048
     Dates: start: 20120521, end: 20120612
  3. VORINOSTAT [Suspect]
     Dosage: DAYS 1-5, WEEKLY
     Dates: start: 20120528, end: 20120601
  4. VORINOSTAT [Suspect]
     Dosage: DAYS 1-5, WEEKLY
     Dates: start: 20120611, end: 20120612
  5. VANCOMYCIN [Suspect]
  6. VORINOSTAT [Suspect]
     Indication: GLIOBLASTOMA MULTIFORME
     Dosage: DAYS 1-5, WEEKLY
     Dates: start: 20120521, end: 20120525

REACTIONS (3)
  - DIARRHOEA [None]
  - FEBRILE NEUTROPENIA [None]
  - ANAEMIA [None]
